FAERS Safety Report 7025472-8 (Version None)
Quarter: 2010Q4

REPORT INFORMATION
  Report Type: 
  Country: None (occurrence: None)
  Receive Date: 20101001
  Receipt Date: 20100924
  Transmission Date: 20110411
  Serious: Yes (Other)
  Sender: FDA-Public Use
  Company Number: US-AMGEN-QUU436987

PATIENT
  Sex: Female
  Weight: 83.1 kg

DRUGS (4)
  1. NPLATE [Suspect]
     Indication: IDIOPATHIC THROMBOCYTOPENIC PURPURA
     Dates: start: 20100406, end: 20100519
  2. VITAMIN B-12 [Concomitant]
     Route: 058
  3. IRON [Concomitant]
     Route: 048
  4. NEBIVOLOL [Concomitant]
     Route: 048

REACTIONS (4)
  - ANAEMIA [None]
  - CONTUSION [None]
  - HAEMORRHAGE [None]
  - THROMBOCYTOPENIA [None]
